FAERS Safety Report 7529952-8 (Version None)
Quarter: 2011Q2

REPORT INFORMATION
  Report Type: 
  Country: None (occurrence: None)
  Receive Date: 20110606
  Receipt Date: 20110606
  Transmission Date: 20111010
  Serious: No
  Sender: FDA-Public Use
  Company Number: None

PATIENT
  Sex: Male
  Weight: 86.1834 kg

DRUGS (2)
  1. ATENOLOL [Concomitant]
  2. METFORMIN HCL [Suspect]
     Indication: DIABETES MELLITUS
     Dosage: 500MG TWICE A DAY PO
     Route: 048
     Dates: start: 20110501, end: 20110531

REACTIONS (2)
  - PRODUCT COUNTERFEIT [None]
  - DRUG INEFFECTIVE [None]
